FAERS Safety Report 10211152 (Version 1)
Quarter: 2014Q2

REPORT INFORMATION
  Report Type: Spontaneous
  Country: US (occurrence: US)
  Receive Date: 20140602
  Receipt Date: 20140602
  Transmission Date: 20141212
  Serious: No
  Sender: FDA-Public Use
  Company Number: US-009507513-1405USA014107

PATIENT
  Sex: Female

DRUGS (1)
  1. NUVARING [Suspect]
     Dosage: 3 WEEKS IN/ ONE WEEK OUT
     Route: 067
     Dates: start: 201309

REACTIONS (3)
  - Device expulsion [Unknown]
  - Device physical property issue [Unknown]
  - No adverse event [Unknown]
